FAERS Safety Report 24217042 (Version 1)
Quarter: 2024Q3

REPORT INFORMATION
  Report Type: Spontaneous
  Country: US (occurrence: US)
  Receive Date: 20240816
  Receipt Date: 20240816
  Transmission Date: 20241017
  Serious: Yes (Other)
  Sender: AMGEN
  Company Number: US-AMGEN-USASP2024159628

PATIENT

DRUGS (4)
  1. RITUXIMAB [Suspect]
     Active Substance: RITUXIMAB
     Indication: Off label use
     Dosage: UNK
     Route: 065
  2. PREDNISONE [Suspect]
     Active Substance: PREDNISONE
     Indication: Systemic lupus erythematosus
     Dosage: 40 MILLIGRAM, QD
     Route: 048
  3. PREDNISONE [Suspect]
     Active Substance: PREDNISONE
     Dosage: 10 MILLIGRAM, QD
     Route: 048
  4. PREDNISONE [Suspect]
     Active Substance: PREDNISONE
     Dosage: 5 MILLIGRAM, QD
     Route: 048

REACTIONS (17)
  - Adrenal insufficiency [Unknown]
  - Osteonecrosis [Unknown]
  - Posterior reversible encephalopathy syndrome [Unknown]
  - Growth retardation [Unknown]
  - Hypertensive emergency [Unknown]
  - Skin striae [Unknown]
  - Amenorrhoea [Unknown]
  - Oligomenorrhoea [Unknown]
  - Cataract subcapsular [Unknown]
  - Hypertension [Unknown]
  - Sleep disorder [Unknown]
  - Affective disorder [Unknown]
  - Body mass index increased [Unknown]
  - Body height decreased [Unknown]
  - Aggression [Unknown]
  - Intraocular pressure increased [Unknown]
  - Off label use [Unknown]
